FAERS Safety Report 19849817 (Version 4)
Quarter: 2022Q1

REPORT INFORMATION
  Report Type: Report from Study
  Country: AR (occurrence: AR)
  Receive Date: 20210918
  Receipt Date: 20220321
  Transmission Date: 20220423
  Serious: Yes (Hospitalization, Other)
  Sender: FDA-Public Use
  Company Number: AR-NOVARTISPH-NVSC2021AR192337

PATIENT
  Sex: Female

DRUGS (2)
  1. GILENYA [Suspect]
     Active Substance: FINGOLIMOD HYDROCHLORIDE
     Indication: Multiple sclerosis
     Dosage: 0.5 MG, QD
     Route: 048
     Dates: start: 20161223, end: 2021
  2. DROSPIRENONE [Concomitant]
     Active Substance: DROSPIRENONE
     Indication: Contraception
     Dosage: UNK
     Route: 065

REACTIONS (12)
  - Multiple sclerosis [Unknown]
  - Optic neuritis [Recovered/Resolved]
  - Deafness [Not Recovered/Not Resolved]
  - Visual impairment [Recovered/Resolved]
  - Anxiety [Unknown]
  - Stress [Unknown]
  - Hypoacusis [Unknown]
  - Otosclerosis [Unknown]
  - Eye pain [Unknown]
  - Tinnitus [Not Recovered/Not Resolved]
  - Onychoclasis [Unknown]
  - Vision blurred [Unknown]

NARRATIVE: CASE EVENT DATE: 20180101
